FAERS Safety Report 9199171 (Version 1)
Quarter: 2013Q1

REPORT INFORMATION
  Report Type: Spontaneous
  Country: US (occurrence: US)
  Receive Date: 20130329
  Receipt Date: 20130329
  Transmission Date: 20140127
  Serious: No
  Sender: FDA-Public Use
  Company Number: US-009507513-1303USA012097

PATIENT
  Sex: Female
  Weight: 68.27 kg

DRUGS (7)
  1. VICTRELIS [Suspect]
     Indication: HEPATITIS C
     Dosage: 800 MG, Q8H STARTING 4 WEEKS AFTER INITIATING STANDARD THERAPY
     Route: 048
  2. PEGASYS [Suspect]
     Indication: HEPATITIS C
  3. RIBAPAK [Suspect]
     Indication: HEPATITIS C
     Dosage: 1000/DAY
  4. PROTONIX [Concomitant]
  5. PROMETHAZINE [Concomitant]
     Dosage: 20 MG/ML
  6. CITALOPRAM [Concomitant]
  7. LUNESTA [Concomitant]

REACTIONS (3)
  - Depression [Unknown]
  - Fatigue [Unknown]
  - Nausea [Unknown]
